FAERS Safety Report 4670165-5 (Version None)
Quarter: 2005Q2

REPORT INFORMATION
  Report Type: 
  Country: None (occurrence: None)
  Receive Date: 20050523
  Receipt Date: 20050517
  Transmission Date: 20051028
  Serious: Yes (Other)
  Sender: FDA-Public Use
  Company Number: 163-20785-05050269

PATIENT
  Age: 14 Year
  Sex: Female

DRUGS (1)
  1. THALOMID [Suspect]

REACTIONS (3)
  - LIVER TRANSPLANT [None]
  - PROCEDURAL COMPLICATION [None]
  - VENTRICULAR TACHYCARDIA [None]
